FAERS Safety Report 15441067 (Version 1)
Quarter: 2018Q3

REPORT INFORMATION
  Report Type: Spontaneous
  Country: US (occurrence: US)
  Receive Date: 20180925
  Receipt Date: 20180925
  Transmission Date: 20181010
  Serious: No
  Sender: FDA-Public Use
  Company Number: None

PATIENT
  Age: 58 Year
  Weight: 97.07 kg

DRUGS (1)
  1. WARFARIN [Suspect]
     Active Substance: WARFARIN
     Indication: PULMONARY EMBOLISM
     Dates: start: 20170927

REACTIONS (9)
  - Haemoglobin decreased [None]
  - Chest pain [None]
  - Large intestinal haemorrhage [None]
  - Fatigue [None]
  - Gastrointestinal haemorrhage [None]
  - International normalised ratio increased [None]
  - Dyspnoea [None]
  - Faeces discoloured [None]
  - Therapy cessation [None]

NARRATIVE: CASE EVENT DATE: 20180602
